FAERS Safety Report 5174754-3 (Version None)
Quarter: 2006Q4

REPORT INFORMATION
  Report Type: 
  Country: None (occurrence: None)
  Receive Date: 20061214
  Receipt Date: 20060612
  Transmission Date: 20070319
  Serious: No
  Sender: FDA-Public Use
  Company Number: US-AMGEN-KDL182729

PATIENT
  Sex: Female

DRUGS (1)
  1. ENBREL [Suspect]
     Indication: PSORIASIS
     Route: 058
     Dates: start: 20041101

REACTIONS (4)
  - DIZZINESS [None]
  - DYSPNOEA EXERTIONAL [None]
  - HYPOAESTHESIA [None]
  - PARAESTHESIA [None]
